FAERS Safety Report 9579483 (Version 2)
Quarter: 2013Q4

REPORT INFORMATION
  Report Type: Spontaneous
  Country: US (occurrence: US)
  Receive Date: 20131001
  Receipt Date: 20131001
  Transmission Date: 20140711
  Serious: No
  Sender: FDA-Public Use
  Company Number: US-AMGEN-USASP2013013793

PATIENT
  Age: 58 Year
  Sex: Female

DRUGS (13)
  1. ENBREL [Suspect]
     Indication: RHEUMATOID ARTHRITIS
     Dosage: 50 MG, QWK
     Dates: start: 20130125, end: 20130222
  2. SULFASALAZIN [Concomitant]
     Dosage: 500 MG, UNK (EC)
  3. HYDROXYCHLOROQUINE [Concomitant]
     Dosage: 200 MG, UNK
  4. PROTONIX [Concomitant]
     Dosage: 20 MG, UNK
  5. SYNTHROID [Concomitant]
     Dosage: 175 MUL, UNK
  6. PREDNISONE [Concomitant]
     Dosage: 2.5 MG, UNK
  7. ACCUPRIL [Concomitant]
     Dosage: 40 MG, UNK
  8. CELEXA                             /00582602/ [Concomitant]
     Dosage: 20 MG, UNK
  9. CALCIUM [Concomitant]
     Dosage: 500 UNK, UNK
  10. VITAMIN D                          /00107901/ [Concomitant]
     Dosage: 400 UNIT, UNK
  11. ROBITUSSIN                         /00048001/ [Concomitant]
     Dosage: 7.5/5ML
  12. PROVENTIL                          /00139501/ [Concomitant]
     Dosage: 90 MUL, UNK
  13. IMODIUM AD [Concomitant]
     Dosage: UNK

REACTIONS (3)
  - Cough [Not Recovered/Not Resolved]
  - Respiratory tract congestion [Not Recovered/Not Resolved]
  - Upper respiratory tract infection [Unknown]
